FAERS Safety Report 23110752 (Version 1)
Quarter: 2023Q4

REPORT INFORMATION
  Report Type: Report from Study
  Country: ES (occurrence: ES)
  Receive Date: 20231026
  Receipt Date: 20231026
  Transmission Date: 20240109
  Serious: Yes (Other)
  Sender: FDA-Public Use
  Company Number: ES-JAZZ PHARMACEUTICALS-2020-ES-014883

PATIENT
  Age: 17 Year

DRUGS (1)
  1. DEFITELIO [Suspect]
     Active Substance: DEFIBROTIDE SODIUM
     Indication: Venoocclusive disease
     Dosage: UNK
     Dates: start: 20181010, end: 20191010

REACTIONS (3)
  - Venoocclusive disease [Unknown]
  - Disease progression [Unknown]
  - Off label use [Unknown]

NARRATIVE: CASE EVENT DATE: 20181010
